FAERS Safety Report 25275012 (Version 1)
Quarter: 2025Q2

REPORT INFORMATION
  Report Type: Spontaneous
  Country: BE (occurrence: BE)
  Receive Date: 20250506
  Receipt Date: 20250506
  Transmission Date: 20250716
  Serious: Yes (Hospitalization, Other)
  Sender: GLAXOSMITHKLINE
  Company Number: None

PATIENT

DRUGS (5)
  1. WELLBUTRIN XL [Interacting]
     Active Substance: BUPROPION HYDROCHLORIDE
     Indication: Product used for unknown indication
     Route: 065
  2. TOPAMAX [Interacting]
     Active Substance: TOPIRAMATE
     Indication: Migraine
     Dosage: 1.5 DF, QD (25 MG IN THE MORNING, 50 MG IN THE EVENING)
     Route: 048
     Dates: start: 20191216, end: 20241218
  3. TOPAMAX [Interacting]
     Active Substance: TOPIRAMATE
     Indication: Epilepsy
  4. ESCITALOPRAM OXALATE [Interacting]
     Active Substance: ESCITALOPRAM OXALATE
     Indication: Product used for unknown indication
     Route: 065
  5. TRAZODONE HYDROCHLORIDE [Interacting]
     Active Substance: TRAZODONE HYDROCHLORIDE
     Indication: Product used for unknown indication
     Route: 065

REACTIONS (5)
  - Paraesthesia [Recovered/Resolved]
  - Calculus urinary [Recovered/Resolved]
  - Depression [Recovered/Resolved]
  - Aphasia [Recovered/Resolved]
  - Drug interaction [Unknown]
